FAERS Safety Report 14358872 (Version 1)
Quarter: 2018Q1

REPORT INFORMATION
  Report Type: Spontaneous
  Country: US (occurrence: US)
  Receive Date: 20180105
  Receipt Date: 20180105
  Transmission Date: 20180509
  Serious: No
  Sender: FDA-Public Use
  Company Number: US-MYLANLABS-2017M1077349

PATIENT
  Age: 63 Year
  Sex: Male

DRUGS (1)
  1. DIAZEPAM TABLETS USP [Suspect]
     Active Substance: DIAZEPAM
     Indication: POST-TRAUMATIC STRESS DISORDER
     Dosage: UNK
     Route: 048
     Dates: start: 20171102

REACTIONS (3)
  - Drug administration error [Not Recovered/Not Resolved]
  - No adverse event [Unknown]
  - Drug ineffective [Not Recovered/Not Resolved]

NARRATIVE: CASE EVENT DATE: 20171102
